FAERS Safety Report 16021933 (Version 1)
Quarter: 2019Q2

REPORT INFORMATION
  Report Type: Spontaneous
  Country: US (occurrence: US)
  Receive Date: 20190301
  Receipt Date: 20190301
  Transmission Date: 20190711
  Serious: Yes (Life-Threatening, Hospitalization, Disabling, Other)
  Sender: FDA-Public Use
  Company Number: None

PATIENT
  Age: 40 Year
  Sex: Female
  Weight: 100 kg

DRUGS (1)
  1. CYTOTEC [Suspect]
     Active Substance: MISOPROSTOL
     Indication: LABOUR INDUCTION
     Dosage: ?          QUANTITY:1600 MCG;?
     Route: 067
     Dates: start: 20190213, end: 20190214

REACTIONS (2)
  - Failed induction of labour [None]
  - Uterine rupture [None]

NARRATIVE: CASE EVENT DATE: 20190215
